FAERS Safety Report 8087751-5 (Version None)
Quarter: 2012Q1

REPORT INFORMATION
  Report Type: 
  Country: None (occurrence: None)
  Receive Date: 20120128
  Receipt Date: 20110527
  Transmission Date: 20120608
  Serious: No
  Sender: FDA-Public Use
  Company Number: US-ABBOTT-11P-163-0728757-00

PATIENT
  Sex: Male
  Weight: 124.85 kg

DRUGS (5)
  1. ASPIRIN [Concomitant]
     Indication: HYPERTENSION
  2. TOPROL-XL [Concomitant]
     Indication: HYPERTENSION
  3. HUMIRA [Suspect]
     Dosage: HUMIRA PEN
  4. AMIODARONE HCL [Concomitant]
     Indication: ATRIAL FIBRILLATION
  5. HUMIRA [Suspect]
     Indication: PSORIATIC ARTHROPATHY
     Route: 058
     Dates: end: 20110201

REACTIONS (3)
  - PSORIASIS [None]
  - PRURITUS [None]
  - ULCER [None]
